FAERS Safety Report 19415311 (Version 1)
Quarter: 2021Q2

REPORT INFORMATION
  Report Type: Spontaneous
  Country: US (occurrence: US)
  Receive Date: 20210615
  Receipt Date: 20210615
  Transmission Date: 20210717
  Serious: Yes (Other)
  Sender: FDA-Public Use
  Company Number: US-MACLEODS PHARMACEUTICALS US LTD-MAC2021031483

PATIENT

DRUGS (6)
  1. ACYCLOVIR. [Suspect]
     Active Substance: ACYCLOVIR
     Indication: HERPES ZOSTER
     Dosage: UNK UNK, TID, IN A SOLUTION OF 5% DEXTROSE IN WATER, 1500 MG/M2 BODY SURFACE AREA D
     Route: 042
  2. HUMAN ALPHA INTERFERON [Concomitant]
     Indication: ANTIVIRAL PROPHYLAXIS
     Dosage: UNK, 6X10^4 U/KG.D INCREASING DOSES OF INTERFERON EVERY 3 DAYS
     Route: 030
  3. METHOTREXATE. [Concomitant]
     Active Substance: METHOTREXATE
     Dosage: UNK
     Route: 042
  4. HUMAN ALPHA INTERFERON [Concomitant]
     Indication: LEUKAEMIA RECURRENT PROPHYLAXIS
     Dosage: UNK, 1.1X10^5 U/KG.D
     Route: 030
  5. METHOTREXATE. [Concomitant]
     Active Substance: METHOTREXATE
     Dosage: UNK EVERY 14 DAYS AFTER TRANSPLANTATION, CONTINUING TILL 102 DAY
     Route: 037
  6. METHOTREXATE. [Concomitant]
     Active Substance: METHOTREXATE
     Indication: PROPHYLAXIS AGAINST GRAFT VERSUS HOST DISEASE
     Dosage: UNK, 10 MG/M2 BODYSURFACE AREA (WITH 12?MG MAXIMUM DOSE), BEFORE TRANSPLANTATION
     Route: 037

REACTIONS (7)
  - Hemiparaesthesia [Recovered/Resolved]
  - Dysarthria [Recovered/Resolved]
  - Lethargy [Recovered/Resolved]
  - Neurotoxicity [Recovered/Resolved]
  - CSF myelin basic protein increased [Recovered/Resolved]
  - Nausea [Recovered/Resolved]
  - Alanine aminotransferase increased [Unknown]
